FAERS Safety Report 4916999-0 (Version None)
Quarter: 2006Q1

REPORT INFORMATION
  Report Type: 
  Country: None (occurrence: None)
  Receive Date: 20060221
  Receipt Date: 20060208
  Transmission Date: 20060701
  Serious: Yes (Life-Threatening)
  Sender: FDA-Public Use
  Company Number: FR-BRISTOL-MYERS SQUIBB COMPANY-13286851

PATIENT
  Age: 70 Year
  Sex: Male
  Weight: 82 kg

DRUGS (12)
  1. ENDOXAN [Suspect]
     Indication: NON-HODGKIN'S LYMPHOMA
     Route: 042
     Dates: start: 20020601, end: 20021025
  2. ADRIBLASTIN [Suspect]
     Indication: NON-HODGKIN'S LYMPHOMA
     Route: 042
     Dates: start: 20020601, end: 20021025
  3. CORTANCYL [Suspect]
     Indication: NON-HODGKIN'S LYMPHOMA
     Route: 048
     Dates: start: 20020601, end: 20021025
  4. ONCOVIN [Suspect]
     Indication: NON-HODGKIN'S LYMPHOMA
     Route: 042
     Dates: start: 20020601, end: 20021025
  5. MABTHERA [Suspect]
     Indication: NON-HODGKIN'S LYMPHOMA
     Route: 042
     Dates: start: 20020601, end: 20021025
  6. PRETERAX [Concomitant]
  7. ELISOR [Concomitant]
  8. LYSINE ACETYLSALICYLATE [Concomitant]
  9. EPOETIN ALFA [Concomitant]
     Dates: start: 20020601
  10. BACTRIM [Concomitant]
  11. ZOVIRAX [Concomitant]
     Dates: end: 20030401
  12. ZOMETA [Concomitant]
     Dates: start: 20021025

REACTIONS (3)
  - COLON CANCER [None]
  - METASTASIS [None]
  - TREATMENT RELATED SECONDARY MALIGNANCY [None]
